FAERS Safety Report 8886294 (Version 2)
Quarter: 2013Q2

REPORT INFORMATION
  Report Type: Report from Study
  Country: CA (occurrence: CA)
  Receive Date: 20121105
  Receipt Date: 20130612
  Transmission Date: 20140414
  Serious: Yes (Other)
  Sender: FDA-Public Use
  Company Number: CA-ROCHE-1152047

PATIENT
  Age: 66 Year
  Sex: Female
  Weight: 113.05 kg

DRUGS (12)
  1. HERCEPTIN [Suspect]
     Indication: BREAST CANCER METASTATIC
     Route: 042
     Dates: start: 20120123
  2. HERCEPTIN [Suspect]
     Route: 042
     Dates: start: 20120213
  3. HERCEPTIN [Suspect]
     Route: 042
     Dates: start: 20120305
  4. CELEBREX [Concomitant]
  5. ATACAND [Concomitant]
  6. ATORVASTATIN [Concomitant]
  7. RABEPRAZOLE [Concomitant]
  8. LYRICA [Concomitant]
  9. TYLENOL #3 (CANADA) [Concomitant]
  10. ASA (ACETYLSALICYLIC ACID) [Concomitant]
  11. LASIX [Concomitant]
  12. AMLODIPINE [Concomitant]

REACTIONS (1)
  - Breast cancer metastatic [Unknown]
